FAERS Safety Report 5846792-6 (Version None)
Quarter: 2008Q3

REPORT INFORMATION
  Report Type: 
  Country: None (occurrence: None)
  Receive Date: 20080815
  Receipt Date: 20080807
  Transmission Date: 20090109
  Serious: Yes (Hospitalization)
  Sender: FDA-Public Use
  Company Number: US-MERCK-0707USA02691

PATIENT
  Age: 77 Year
  Sex: Female

DRUGS (4)
  1. FOSAMAX [Suspect]
     Indication: OSTEOPOROSIS
     Route: 048
     Dates: start: 20030519, end: 20050401
  2. DETROL [Concomitant]
     Indication: URINARY TRACT DISORDER
     Route: 065
     Dates: start: 20010101
  3. TARGET (ATENOLOL (+) CHLORTHALIDONE) [Concomitant]
     Indication: HYPERTENSION
     Route: 065
     Dates: start: 19900101
  4. [THERAPY UNSPECIFIED] [Concomitant]
     Route: 065

REACTIONS (10)
  - DIABETES MELLITUS [None]
  - HERPES ZOSTER [None]
  - OSTEOMYELITIS [None]
  - OSTEONECROSIS [None]
  - POLYMYALGIA RHEUMATICA [None]
  - SIALOADENITIS [None]
  - SUBMANDIBULAR MASS [None]
  - SYNOVIAL CYST [None]
  - TOOTH DISORDER [None]
  - VULVOVAGINAL MYCOTIC INFECTION [None]
